FAERS Safety Report 19051266 (Version 1)
Quarter: 2021Q1

REPORT INFORMATION
  Report Type: Spontaneous
  Country: US (occurrence: US)
  Receive Date: 20210324
  Receipt Date: 20210324
  Transmission Date: 20210420
  Serious: No
  Sender: FDA-Public Use
  Company Number: None

PATIENT
  Age: 63 Year
  Sex: Female
  Weight: 85.86 kg

DRUGS (4)
  1. PEGFILGRASTRIM [Concomitant]
     Dates: start: 20210322, end: 20210322
  2. DOCETAXEL. [Concomitant]
     Active Substance: DOCETAXEL
     Dates: start: 20210322, end: 20210322
  3. CARBOPLATIN. [Concomitant]
     Active Substance: CARBOPLATIN
     Dates: start: 20210322, end: 20210322
  4. KANJINTI [Suspect]
     Active Substance: TRASTUZUMAB-ANNS
     Indication: BREAST CANCER
     Route: 042
     Dates: start: 20210322, end: 20210322

REACTIONS (2)
  - Rash [None]
  - Dizziness [None]

NARRATIVE: CASE EVENT DATE: 20210323
